FAERS Safety Report 9284665 (Version 3)
Quarter: 2013Q4

REPORT INFORMATION
  Report Type: Spontaneous
  Country: IT (occurrence: IT)
  Receive Date: 20130513
  Receipt Date: 20131030
  Transmission Date: 20140711
  Serious: Yes (Hospitalization)
  Sender: FDA-Public Use
  Company Number: IT-RANBAXY-2013R1-68659

PATIENT
  Age: 67 Year
  Sex: Male

DRUGS (6)
  1. SERTRALINE [Suspect]
     Indication: SUICIDE ATTEMPT
     Dosage: 250MG, COMPLETE
     Route: 048
     Dates: start: 20130402, end: 20130402
  2. SERENASE [Suspect]
     Indication: SUICIDE ATTEMPT
     Dosage: 15 ML, COMPLETE
     Route: 048
     Dates: start: 20130402, end: 20130402
  3. XANAX [Concomitant]
     Indication: PRODUCT USED FOR UNKNOWN INDICATION
     Route: 065
  4. DEPAKIN [Concomitant]
     Indication: PRODUCT USED FOR UNKNOWN INDICATION
     Route: 065
  5. ZOLPIDEM TARTRATE [Concomitant]
     Indication: PRODUCT USED FOR UNKNOWN INDICATION
     Dosage: UNK
     Route: 065
  6. SERTRALINE HYDROCHLORIDE [Suspect]
     Indication: DEPRESSION
     Dosage: UNK
     Route: 065

REACTIONS (3)
  - Toxicity to various agents [Recovering/Resolving]
  - Drug abuse [Recovering/Resolving]
  - Suicide attempt [Recovering/Resolving]
